FAERS Safety Report 21619607 (Version 1)
Quarter: 2022Q4

REPORT INFORMATION
  Report Type: Report from Study
  Country: US (occurrence: US)
  Receive Date: 20221121
  Receipt Date: 20221121
  Transmission Date: 20230112
  Serious: No
  Sender: FDA-Public Use
  Company Number: US-ABBVIE-4180126

PATIENT
  Age: 64 Year
  Sex: Female

DRUGS (3)
  1. HUMIRA [Suspect]
     Active Substance: ADALIMUMAB
     Indication: Product used for unknown indication
     Dosage: FORM STRENGTH: 80 MILLIGRAM?DAY 1?CITRATE FREE
     Route: 058
  2. HUMIRA [Suspect]
     Active Substance: ADALIMUMAB
  3. COVID-19 VACCINE [Concomitant]
     Indication: COVID-19 immunisation
     Route: 030

REACTIONS (5)
  - Neuropathy peripheral [Unknown]
  - COVID-19 [Unknown]
  - Back pain [Unknown]
  - Weight decreased [Unknown]
  - Arthritis [Unknown]

NARRATIVE: CASE EVENT DATE: 20221006
